FAERS Safety Report 8914637 (Version 3)
Quarter: 2013Q1

REPORT INFORMATION
  Report Type: Spontaneous
  Country: DE (occurrence: DE)
  Receive Date: 20121119
  Receipt Date: 20130219
  Transmission Date: 20140127
  Serious: Yes (Life-Threatening, Disabling, Other)
  Sender: FDA-Public Use
  Company Number: DE-ROCHE-1148148

PATIENT
  Sex: Male
  Weight: 80 kg

DRUGS (4)
  1. MABTHERA [Suspect]
     Indication: PROGRESSIVE MULTIPLE SCLEROSIS
     Route: 042
     Dates: start: 20120912, end: 20120926
  2. MABTHERA [Suspect]
     Indication: OFF LABEL USE
  3. MABTHERA [Suspect]
     Indication: RHEUMATOID ARTHRITIS
  4. ILOMEDIN [Concomitant]
     Indication: PROGRESSIVE MULTIPLE SCLEROSIS
     Dosage: 1 DF
     Route: 042
     Dates: start: 20120910, end: 20120914

REACTIONS (14)
  - Pulmonary oedema [Not Recovered/Not Resolved]
  - Cardiac failure acute [Not Recovered/Not Resolved]
  - Cardiac failure [Unknown]
  - Cardiac failure [Not Recovered/Not Resolved]
  - Disturbance in attention [Not Recovered/Not Resolved]
  - Visual impairment [Not Recovered/Not Resolved]
  - Encephalopathy [Not Recovered/Not Resolved]
  - Hypertensive encephalopathy [Not Recovered/Not Resolved]
  - Renal failure [Not Recovered/Not Resolved]
  - Fatigue [Not Recovered/Not Resolved]
  - Tachyarrhythmia [Not Recovered/Not Resolved]
  - Decreased appetite [Not Recovered/Not Resolved]
  - Weight decreased [Not Recovered/Not Resolved]
  - Posterior reversible encephalopathy syndrome [Not Recovered/Not Resolved]
